FAERS Safety Report 15953671 (Version 3)
Quarter: 2019Q1

REPORT INFORMATION
  Report Type: Report from Study
  Country: US (occurrence: US)
  Receive Date: 20190212
  Receipt Date: 20190305
  Transmission Date: 20190417
  Serious: Yes (Hospitalization, Other)
  Sender: FDA-Public Use
  Company Number: US-GILEAD-2019-0390319

PATIENT
  Age: 54 Year
  Sex: Female
  Weight: 97.96 kg

DRUGS (41)
  1. TOPAMAX [Concomitant]
     Active Substance: TOPIRAMATE
  2. TESSALON [Concomitant]
     Active Substance: BENZONATATE
  3. POTASSIUM CHLORIDE. [Concomitant]
     Active Substance: POTASSIUM CHLORIDE
  4. OCEAN NASAL [Concomitant]
  5. BREO ELLIPTA [Concomitant]
     Active Substance: FLUTICASONE FUROATE\VILANTEROL TRIFENATATE
  6. HYDROCODONE/ACETAMINOPHEN [Concomitant]
     Active Substance: ACETAMINOPHEN\HYDROCODONE
  7. ZOFRAN [Concomitant]
     Active Substance: ONDANSETRON HYDROCHLORIDE
  8. KLONOPIN [Concomitant]
     Active Substance: CLONAZEPAM
  9. LASIX [Concomitant]
     Active Substance: FUROSEMIDE
  10. BACTRIM DS [Concomitant]
     Active Substance: SULFAMETHOXAZOLE\TRIMETHOPRIM
  11. CELLCEPT [Concomitant]
     Active Substance: MYCOPHENOLATE MOFETIL\MYCOPHENOLATE MOFETIL HYDROCHLORIDE
  12. SEROQUEL [Concomitant]
     Active Substance: QUETIAPINE FUMARATE
  13. ALBUTEROL [SALBUTAMOL SULFATE] [Concomitant]
     Active Substance: ALBUTEROL SULFATE
  14. AZELASTINE. [Concomitant]
     Active Substance: AZELASTINE HYDROCHLORIDE
  15. ROPINIROLE. [Concomitant]
     Active Substance: ROPINIROLE
  16. REMODULIN [Suspect]
     Active Substance: TREPROSTINIL
     Indication: PRODUCT USED FOR UNKNOWN INDICATION
     Route: 065
  17. FLONASE [Concomitant]
     Active Substance: FLUTICASONE PROPIONATE
  18. LASIX [Concomitant]
     Active Substance: FUROSEMIDE
  19. LIDOCAINE. [Concomitant]
     Active Substance: LIDOCAINE
  20. PANTOPRAZOLE [Concomitant]
     Active Substance: PANTOPRAZOLE
  21. PHENERGAN [DIBROMPROPAMIDINE ISETIONATE;PROMETHAZINE HYDROCHLORIDE] [Concomitant]
  22. ELIQUIS [Concomitant]
     Active Substance: APIXABAN
  23. ZOLOFT [Concomitant]
     Active Substance: SERTRALINE HYDROCHLORIDE
  24. ADCIRCA [Concomitant]
     Active Substance: TADALAFIL
  25. BIOTIN [Concomitant]
     Active Substance: BIOTIN
  26. COLACE [Concomitant]
     Active Substance: DOCUSATE SODIUM
  27. MORPHINE [Concomitant]
     Active Substance: MORPHINE
  28. VITAMIN B12 [COBAMAMIDE] [Concomitant]
  29. MAGNESIUM OXIDE. [Concomitant]
     Active Substance: MAGNESIUM OXIDE
  30. PROTONIX [Concomitant]
     Active Substance: PANTOPRAZOLE SODIUM
  31. ZANAFLEX [Concomitant]
     Active Substance: TIZANIDINE HYDROCHLORIDE
  32. HYDROXYZINE [Concomitant]
     Active Substance: HYDROXYZINE HYDROCHLORIDE
  33. TADALAFIL. [Concomitant]
     Active Substance: TADALAFIL
  34. THORAZINE [Concomitant]
     Active Substance: CHLORPROMAZINE
  35. AMBRISENTAN [Suspect]
     Active Substance: AMBRISENTAN
     Indication: PULMONARY HYPERTENSION
     Dosage: 10 MG, QD
     Route: 048
  36. ASPIRIN [ACETYLSALICYLIC ACID] [Concomitant]
     Active Substance: ASPIRIN
  37. REQUIP [Concomitant]
     Active Substance: ROPINIROLE HYDROCHLORIDE
  38. XANAX [Concomitant]
     Active Substance: ALPRAZOLAM
  39. SINGULAIR [Concomitant]
     Active Substance: MONTELUKAST SODIUM
  40. MIRALAX [Concomitant]
     Active Substance: POLYETHYLENE GLYCOL 3350
  41. SENOKOT [Concomitant]
     Active Substance: SENNOSIDES

REACTIONS (6)
  - Back pain [Not Recovered/Not Resolved]
  - Malaise [Not Recovered/Not Resolved]
  - Nasopharyngitis [Not Recovered/Not Resolved]
  - Pain in extremity [Not Recovered/Not Resolved]
  - Blood potassium decreased [Recovering/Resolving]
  - Right ventricular failure [Unknown]
